FAERS Safety Report 18999109 (Version 3)
Quarter: 2021Q1

REPORT INFORMATION
  Report Type: Spontaneous
  Country: ZA (occurrence: ZA)
  Receive Date: 20210312
  Receipt Date: 20210318
  Transmission Date: 20210420
  Serious: Yes (Other)
  Sender: FDA-Public Use
  Company Number: ZA-ROCHE-2777485

PATIENT
  Age: 42 Year
  Sex: Female

DRUGS (1)
  1. HERCLON [Suspect]
     Active Substance: TRASTUZUMAB
     Indication: BREAST CANCER
     Route: 041

REACTIONS (5)
  - Drug ineffective [Unknown]
  - Metastatic neoplasm [Unknown]
  - Metastases to spine [Unknown]
  - Mastectomy [Unknown]
  - Cerebral disorder [Unknown]

NARRATIVE: CASE EVENT DATE: 202002
